FAERS Safety Report 5136298-4 (Version None)
Quarter: 2006Q4

REPORT INFORMATION
  Report Type: 
  Country: None (occurrence: None)
  Receive Date: 20061027
  Receipt Date: 20040212
  Transmission Date: 20070319
  Serious: Yes (Other)
  Sender: FDA-Public Use
  Company Number: JP-GLAXOSMITHKLINE-B0323307A

PATIENT
  Age: 22 Year
  Sex: Male

DRUGS (5)
  1. PAXIL [Suspect]
     Indication: DEPRESSION
     Route: 048
     Dates: start: 20030623, end: 20030908
  2. LENDORMIN [Concomitant]
     Indication: DEPRESSION
     Dosage: .25MG PER DAY
     Route: 048
     Dates: start: 20030811, end: 20040219
  3. ZOLPIDEM TARTRATE [Concomitant]
     Indication: DEPRESSION
     Dosage: 10MG PER DAY
     Route: 048
     Dates: start: 20030707, end: 20030908
  4. AMOBAN [Concomitant]
     Indication: DEPRESSION
     Dosage: 10MG PER DAY
     Route: 048
     Dates: start: 20030623, end: 20030706
  5. LORAZEPAM [Concomitant]
     Indication: DEPRESSION
     Route: 048
     Dates: start: 20030623, end: 20030909

REACTIONS (13)
  - AGGRESSION [None]
  - AGITATION [None]
  - AKATHISIA [None]
  - DYSAESTHESIA [None]
  - FRUSTRATION [None]
  - HYPOMANIA [None]
  - IMPULSIVE BEHAVIOUR [None]
  - INTENTIONAL OVERDOSE [None]
  - IRRITABILITY [None]
  - MALAISE [None]
  - SELF INJURIOUS BEHAVIOUR [None]
  - SUICIDAL IDEATION [None]
  - SUICIDE ATTEMPT [None]
